FAERS Safety Report 9274508 (Version 2)
Quarter: 2013Q2

REPORT INFORMATION
  Report Type: Report from Study
  Country: US (occurrence: US)
  Receive Date: 20130507
  Receipt Date: 20130507
  Transmission Date: 20140414
  Serious: Yes (Death)
  Sender: FDA-Public Use
  Company Number: US-GLENMARK GENERICS INC.-GGEL20120700854

PATIENT
  Age: 34 Year
  Sex: Male
  Weight: 70.3 kg

DRUGS (4)
  1. CALCIPOTRIENE [Suspect]
     Indication: PSORIASIS
     Dosage: UNK, BID
     Route: 061
     Dates: start: 20120606, end: 20120712
  2. DOVONEX [Suspect]
     Indication: PSORIASIS
     Dosage: UNK, BID
     Route: 061
     Dates: start: 20120606, end: 20120712
  3. BLINDED PLACEBO [Suspect]
     Indication: PSORIASIS
     Dosage: UNK, BID
     Route: 061
     Dates: start: 20120606, end: 20120712
  4. XANAX [Concomitant]
     Indication: ANXIETY
     Dosage: 1 MG, QD
     Route: 048
     Dates: start: 2008, end: 2008

REACTIONS (3)
  - Sudden death [Fatal]
  - Overdose [None]
  - Toxicity to various agents [None]
